FAERS Safety Report 4821317-2 (Version None)
Quarter: 2005Q4

REPORT INFORMATION
  Report Type: 
  Country: None (occurrence: None)
  Receive Date: 20051107
  Receipt Date: 20050809
  Transmission Date: 20060501
  Serious: No
  Sender: FDA-Public Use
  Company Number: US-GLAXOSMITHKLINE-A0569506A

PATIENT
  Age: 64 Year
  Sex: Male

DRUGS (6)
  1. AVANDAMET [Suspect]
     Dosage: 1TAB PER DAY
     Route: 048
     Dates: start: 20050524, end: 20050601
  2. AVANDIA [Suspect]
     Dosage: 4MG TWICE PER DAY
     Route: 048
     Dates: start: 20050610, end: 20050805
  3. GLUCOPHAGE [Concomitant]
  4. LASIX [Concomitant]
  5. INSULIN [Concomitant]
  6. BLOOD PRESSURE MEDICATION [Concomitant]

REACTIONS (3)
  - DYSPNOEA [None]
  - FLUID RETENTION [None]
  - MIDDLE EAR EFFUSION [None]
